FAERS Safety Report 13818578 (Version 4)
Quarter: 2017Q3

REPORT INFORMATION
  Report Type: Spontaneous
  Country: AU (occurrence: AU)
  Receive Date: 20170731
  Receipt Date: 20170811
  Transmission Date: 20171127
  Serious: Yes (Disabling)
  Sender: FDA-Public Use
  Company Number: AU-BAUSCH-BL-2017-022758

PATIENT
  Age: 56 Year
  Sex: Female
  Weight: 65 kg

DRUGS (2)
  1. ALDARA [Suspect]
     Active Substance: IMIQUIMOD
     Indication: BOWEN^S DISEASE
     Route: 061
     Dates: start: 20170107, end: 20170228
  2. ALDARA [Suspect]
     Active Substance: IMIQUIMOD
     Indication: BASAL CELL CARCINOMA

REACTIONS (2)
  - Tinnitus [Not Recovered/Not Resolved]
  - Headache [Recovered/Resolved]

NARRATIVE: CASE EVENT DATE: 2017
